FAERS Safety Report 4310070-7 (Version None)
Quarter: 2004Q1

REPORT INFORMATION
  Report Type: 
  Country: None (occurrence: None)
  Receive Date: 20040301
  Receipt Date: 20031030
  Transmission Date: 20041129
  Serious: No
  Sender: FDA-Public Use
  Company Number: WAES 0310USA01762

PATIENT
  Age: 38 Year
  Sex: Female
  Weight: 71.6683 kg

DRUGS (1)
  1. ZETIA [Suspect]
     Indication: BLOOD CHOLESTEROL INCREASED
     Dosage: 10 MG/DAILY/PO
     Route: 048
     Dates: start: 20030410, end: 20031008

REACTIONS (3)
  - BLOOD PRESSURE INCREASED [None]
  - INCREASED APPETITE [None]
  - WEIGHT INCREASED [None]
